FAERS Safety Report 9371158 (Version 1)
Quarter: 2013Q2

REPORT INFORMATION
  Report Type: Spontaneous
  Country: US (occurrence: None)
  Receive Date: 20130626
  Receipt Date: 20130626
  Transmission Date: 20140414
  Serious: Yes (Other)
  Sender: FDA-Public Use
  Company Number: None

PATIENT
  Age: 71 Year
  Sex: Female
  Weight: 56.7 kg

DRUGS (1)
  1. ATELVIA [Suspect]
     Indication: OSTEOPOROSIS
     Dosage: -9-JUN-2013
     Route: 048
     Dates: start: 20130526, end: 20130602

REACTIONS (4)
  - Abdominal pain upper [None]
  - Abdominal pain [None]
  - Influenza like illness [None]
  - Decreased appetite [None]
